FAERS Safety Report 6313412-6 (Version None)
Quarter: 2009Q3

REPORT INFORMATION
  Report Type: 
  Country: None (occurrence: None)
  Receive Date: 20090814
  Receipt Date: 20090814
  Transmission Date: 20100115
  Serious: Yes (Other)
  Sender: FDA-Public Use
  Company Number: None

PATIENT
  Sex: Female
  Weight: 139.1636 kg

DRUGS (2)
  1. TEGRETOL [Suspect]
     Indication: CONVULSION
     Dosage: ONE 3 TIMES A DAY PO
     Route: 048
     Dates: start: 19860306, end: 20040314
  2. TEGRETOL [Suspect]
     Indication: MIGRAINE
     Dosage: ONE 3 TIMES A DAY PO
     Route: 048
     Dates: start: 19860306, end: 20040314

REACTIONS (1)
  - MIGRAINE [None]
